FAERS Safety Report 9592528 (Version 3)
Quarter: 2013Q4

REPORT INFORMATION
  Report Type: Spontaneous
  Country: US (occurrence: US)
  Receive Date: 20131004
  Receipt Date: 20131121
  Transmission Date: 20140711
  Serious: No
  Sender: FDA-Public Use
  Company Number: US-JNJFOC-20130916531

PATIENT
  Age: 18 Year
  Sex: Male
  Weight: 68.95 kg

DRUGS (9)
  1. REMICADE [Suspect]
     Indication: CROHN^S DISEASE
     Dosage: 5 MG/KG
     Route: 042
     Dates: start: 20130822
  2. REMICADE [Suspect]
     Indication: CROHN^S DISEASE
     Dosage: 5 MG/KG
     Route: 042
     Dates: start: 20131015
  3. REMICADE [Suspect]
     Indication: CROHN^S DISEASE
     Dosage: 5 MG/KG Q 8 WEEKS
     Route: 042
     Dates: start: 20130722
  4. PREDNISONE [Concomitant]
     Route: 048
     Dates: start: 20130918
  5. PREDNISONE [Concomitant]
     Route: 048
     Dates: start: 20130919
  6. PREDNISONE [Concomitant]
     Dosage: FOR 10 DAYS
     Route: 048
  7. PREDNISONE [Concomitant]
     Dosage: FOR 10 DAYS
     Route: 048
  8. PREDNISONE [Concomitant]
     Route: 048
  9. PREDNISONE [Concomitant]
     Dosage: FOR 10 DAYS
     Route: 048

REACTIONS (2)
  - Blindness transient [Recovering/Resolving]
  - Weight increased [Unknown]
